FAERS Safety Report 18735047 (Version 1)
Quarter: 2021Q1

REPORT INFORMATION
  Report Type: Spontaneous
  Country: CA (occurrence: CA)
  Receive Date: 20210113
  Receipt Date: 20210113
  Transmission Date: 20210419
  Serious: Yes (Hospitalization)
  Sender: FDA-Public Use
  Company Number: CA-TEVA-2020-CA-1864967

PATIENT
  Age: 75 Year
  Sex: Male

DRUGS (14)
  1. ARANESP [Concomitant]
     Active Substance: DARBEPOETIN ALFA
  2. RENVELA [Concomitant]
     Active Substance: SEVELAMER CARBONATE
  3. SODIUM BICARBONATE. [Concomitant]
     Active Substance: SODIUM BICARBONATE
  4. CHLORTHALIDONE. [Concomitant]
     Active Substance: CHLORTHALIDONE
  5. FUROSEMIDE. [Concomitant]
     Active Substance: FUROSEMIDE
  6. VITAMIN D [Concomitant]
     Active Substance: VITAMIN D NOS
  7. PREDNISONE. [Suspect]
     Active Substance: PREDNISONE
     Dosage: 30 MILLIGRAM DAILY;
     Route: 048
  8. CALCIUM [Concomitant]
     Active Substance: CALCIUM
  9. HUMALOG [Concomitant]
     Active Substance: INSULIN LISPRO
  10. ABASAGLAR INSULIN [Concomitant]
     Active Substance: INSULIN GLARGINE
  11. ADALAT XL ? SRT [Concomitant]
  12. XANAX [Concomitant]
     Active Substance: ALPRAZOLAM
  13. CITALOPRAM [Concomitant]
     Active Substance: CITALOPRAM HYDROBROMIDE
  14. GLUCOSE [Concomitant]
     Active Substance: DEXTROSE

REACTIONS (1)
  - Duodenal ulcer haemorrhage [Unknown]
